FAERS Safety Report 6570858-9 (Version None)
Quarter: 2010Q1

REPORT INFORMATION
  Report Type: 
  Country: None (occurrence: None)
  Receive Date: 20100203
  Receipt Date: 20100203
  Transmission Date: 20100710
  Serious: Yes (Life-Threatening)
  Sender: FDA-Public Use
  Company Number: None

PATIENT
  Sex: Male
  Weight: 31.9786 kg

DRUGS (2)
  1. BUPROPION HCL [Suspect]
     Indication: ATTENTION DEFICIT/HYPERACTIVITY DISORDER
     Dosage: 1/2 TAB EVERY AM X 8 THEN 1 Q AM X 8 PO
     Route: 048
     Dates: start: 20100106, end: 20100121
  2. BUPROPION HCL [Suspect]
     Indication: DEPRESSION
     Dosage: 1 TAB EVERY AM X 1 DAY PO
     Route: 048
     Dates: start: 20100122, end: 20100122

REACTIONS (3)
  - ABNORMAL BEHAVIOUR [None]
  - PRURITUS [None]
  - URTICARIA [None]
